FAERS Safety Report 6641742-7 (Version None)
Quarter: 2010Q1

REPORT INFORMATION
  Report Type: 
  Country: None (occurrence: None)
  Receive Date: 20100319
  Receipt Date: 20100312
  Transmission Date: 20100710
  Serious: Yes (Hospitalization)
  Sender: FDA-Public Use
  Company Number: US-BIOGENIDEC-2010BI008317

PATIENT
  Age: 35 Year
  Sex: Female

DRUGS (4)
  1. AVONEX [Suspect]
     Indication: MULTIPLE SCLEROSIS
     Route: 030
     Dates: start: 20091101
  2. AVINZA [Concomitant]
  3. MIDODRINE HYDROCHLORIDE [Concomitant]
  4. GABAPENTIN [Concomitant]

REACTIONS (10)
  - BLOOD GLUCOSE INCREASED [None]
  - CHEST PAIN [None]
  - COUGH [None]
  - DYSPHONIA [None]
  - EYE PAIN [None]
  - INCREASED UPPER AIRWAY SECRETION [None]
  - OPTIC NEURITIS [None]
  - PYREXIA [None]
  - STRESS URINARY INCONTINENCE [None]
  - VISION BLURRED [None]
